FAERS Safety Report 14017181 (Version 1)
Quarter: 2017Q3

REPORT INFORMATION
  Report Type: Report from Study
  Country: BR (occurrence: BR)
  Receive Date: 20170927
  Receipt Date: 20170927
  Transmission Date: 20171128
  Serious: Yes (Hospitalization)
  Sender: FDA-Public Use
  Company Number: BR-BIOMARINAP-BR-2017-115528

PATIENT
  Age: 4 Year

DRUGS (1)
  1. NAGLAZYME [Suspect]
     Active Substance: GALSULFASE
     Indication: MUCOPOLYSACCHARIDOSIS VI
     Route: 065

REACTIONS (6)
  - Pulmonary hypertension [Unknown]
  - Respiratory failure [Unknown]
  - Flushing [Unknown]
  - Tachycardia [Unknown]
  - Dyspnoea [Unknown]
  - Tachypnoea [Unknown]
